FAERS Safety Report 13959793 (Version 3)
Quarter: 2018Q2

REPORT INFORMATION
  Report Type: Spontaneous
  Country: US (occurrence: US)
  Receive Date: 20170911
  Receipt Date: 20180426
  Transmission Date: 20180711
  Serious: Yes (Hospitalization, Other)
  Sender: FDA-Public Use
  Company Number: US-DSJP-DSU-2017-136546

PATIENT

DRUGS (2)
  1. BENICAR [Suspect]
     Active Substance: OLMESARTAN MEDOXOMIL
     Dosage: 40 MG, QD
     Dates: start: 20070619, end: 20151120
  2. BENICAR [Suspect]
     Active Substance: OLMESARTAN MEDOXOMIL
     Indication: PRODUCT USED FOR UNKNOWN INDICATION
     Dosage: 20 MG, QD
     Dates: start: 20070619, end: 20151120

REACTIONS (12)
  - Syncope [Unknown]
  - Hepatic enzyme increased [Unknown]
  - Hiatus hernia [Unknown]
  - Hypotension [Unknown]
  - Haemorrhoids [Not Recovered/Not Resolved]
  - Gastritis [Unknown]
  - Diverticulitis [Recovered/Resolved]
  - Renal failure [Unknown]
  - Diarrhoea [Recovered/Resolved]
  - Gastrooesophageal reflux disease [Recovering/Resolving]
  - Diverticulum intestinal [Unknown]
  - Weight decreased [Recovered/Resolved]

NARRATIVE: CASE EVENT DATE: 20090601
